FAERS Safety Report 14008632 (Version 1)
Quarter: 2017Q3

REPORT INFORMATION
  Report Type: Spontaneous
  Country: US (occurrence: US)
  Receive Date: 20170925
  Receipt Date: 20170925
  Transmission Date: 20171128
  Serious: No
  Sender: FDA-Public Use
  Company Number: US-OREXO US, INC.-ORE201706-000063

PATIENT
  Sex: Female

DRUGS (1)
  1. ZUBSOLV [Suspect]
     Active Substance: BUPRENORPHINE HYDROCHLORIDE\NALOXONE HYDROCHLORIDE
     Indication: BACK PAIN
     Dosage: 1.4 MG/0.36 MG
     Route: 060
     Dates: start: 20170531

REACTIONS (6)
  - Prescription drug used without a prescription [Unknown]
  - Nausea [Recovered/Resolved]
  - Vomiting [Recovered/Resolved]
  - Alcohol interaction [Unknown]
  - Off label use [Unknown]
  - Malaise [Recovered/Resolved]

NARRATIVE: CASE EVENT DATE: 20170531
